FAERS Safety Report 6132571-1 (Version None)
Quarter: 2009Q1

REPORT INFORMATION
  Report Type: 
  Country: None (occurrence: None)
  Receive Date: 20090325
  Receipt Date: 20090310
  Transmission Date: 20090719
  Serious: Yes (Hospitalization)
  Sender: FDA-Public Use
  Company Number: NL-GENENTECH-279448

PATIENT
  Sex: Female
  Weight: 88.1 kg

DRUGS (4)
  1. XOLAIR [Suspect]
     Indication: ASTHMA
     Dosage: UNK
     Dates: start: 20080401, end: 20090223
  2. SINGULAIR [Concomitant]
     Indication: DRUG USE FOR UNKNOWN INDICATION
  3. NASONEX [Concomitant]
     Indication: DRUG USE FOR UNKNOWN INDICATION
  4. SYMBICORT [Concomitant]
     Indication: DRUG USE FOR UNKNOWN INDICATION

REACTIONS (4)
  - LEUKOCYTOSIS [None]
  - MUSCULOSKELETAL PAIN [None]
  - PYREXIA [None]
  - SERUM SICKNESS [None]
